FAERS Safety Report 6827481-8 (Version None)
Quarter: 2010Q3

REPORT INFORMATION
  Report Type: 
  Country: None (occurrence: None)
  Receive Date: 20100709
  Receipt Date: 20070113
  Transmission Date: 20110219
  Serious: Yes (Other)
  Sender: FDA-Public Use
  Company Number: US-PFIZER INC-2007004212

PATIENT
  Sex: Female
  Weight: 74.8 kg

DRUGS (10)
  1. CHANTIX [Suspect]
     Indication: SMOKING CESSATION THERAPY
     Route: 048
     Dates: start: 20070106
  2. AMOXICILLIN [Suspect]
     Indication: PROPHYLAXIS
  3. VERAPAMIL [Concomitant]
  4. LIPITOR [Concomitant]
  5. LISINOPRIL [Concomitant]
  6. HUMIRA [Concomitant]
  7. VITAMIN C [Concomitant]
  8. RETINOL [Concomitant]
  9. VITAMIN E [Concomitant]
  10. CENTRUM SILVER [Concomitant]

REACTIONS (5)
  - DIARRHOEA [None]
  - FLATULENCE [None]
  - HUNGER [None]
  - HYPERSENSITIVITY [None]
  - TOOTH REPAIR [None]
